FAERS Safety Report 10147313 (Version 1)
Quarter: 2014Q2

REPORT INFORMATION
  Report Type: Spontaneous
  Country: US (occurrence: US)
  Receive Date: 20140501
  Receipt Date: 20140501
  Transmission Date: 20141212
  Serious: No
  Sender: FDA-Public Use
  Company Number: US-SA-2014SA011779

PATIENT
  Age: 80 Year
  Sex: Male
  Weight: 67.5 kg

DRUGS (5)
  1. HECTOROL [Suspect]
     Indication: HYPERPARATHYROIDISM SECONDARY
     Route: 042
     Dates: start: 20131227
  2. HECTOROL [Suspect]
     Indication: HYPERPARATHYROIDISM SECONDARY
     Route: 042
     Dates: start: 20131229
  3. HECTOROL [Suspect]
     Indication: HYPERPARATHYROIDISM SECONDARY
     Route: 042
     Dates: start: 20140111, end: 20140220
  4. HEPARIN [Concomitant]
     Dosage: DAILY DOSE: 2000 U WITH DIALYSIS DOSE:2000 UNIT(S)
  5. ERYTHROPOIETIN [Concomitant]
     Indication: ANAEMIA
     Dosage: DAILY DOSE: 7600 U WITH DIALYSIS DOSE:7600 UNIT(S)

REACTIONS (5)
  - Hypersensitivity [Recovered/Resolved]
  - Hypersensitivity [Unknown]
  - Rash [Recovered/Resolved]
  - Lip swelling [Recovered/Resolved]
  - Pruritus [Recovered/Resolved]
